FAERS Safety Report 8100027-2 (Version None)
Quarter: 2012Q1

REPORT INFORMATION
  Report Type: 
  Country: None (occurrence: None)
  Receive Date: 20120129
  Receipt Date: 20111101
  Transmission Date: 20120608
  Serious: No
  Sender: FDA-Public Use
  Company Number: US-ABBOTT-11P-163-0870762-00

PATIENT
  Sex: Female
  Weight: 54.48 kg

DRUGS (8)
  1. METHOTREXATE [Concomitant]
     Indication: RHEUMATOID ARTHRITIS
  2. PLAQUENIL [Concomitant]
     Indication: RHEUMATOID ARTHRITIS
  3. NEURONTIN [Concomitant]
     Indication: NEURALGIA
  4. UNKNOWN MEDICATION [Concomitant]
     Indication: DEPRESSION
  5. MORPHINE [Concomitant]
     Indication: PAIN
  6. NORCO [Concomitant]
     Indication: PAIN
  7. HUMIRA [Suspect]
     Indication: RHEUMATOID ARTHRITIS
     Dates: start: 20111025
  8. HUMIRA [Suspect]
     Indication: SYSTEMIC LUPUS ERYTHEMATOSUS

REACTIONS (4)
  - PAIN IN EXTREMITY [None]
  - PAIN [None]
  - ARTHRALGIA [None]
  - OFF LABEL USE [None]
